FAERS Safety Report 25570537 (Version 6)
Quarter: 2025Q3

REPORT INFORMATION
  Report Type: Report from Study
  Country: US (occurrence: US)
  Receive Date: 20250717
  Receipt Date: 20250916
  Transmission Date: 20251020
  Serious: Yes (Hospitalization, Other)
  Sender: TAKEDA
  Company Number: US-TAKEDA-2025TUS061468

PATIENT
  Age: 43 Year
  Sex: Female
  Weight: 78 kg

DRUGS (26)
  1. TEDUGLUTIDE [Suspect]
     Active Substance: TEDUGLUTIDE
     Indication: Short-bowel syndrome
     Dosage: 0.22 MILLILITER, QD
     Dates: start: 202506
  2. TEDUGLUTIDE [Suspect]
     Active Substance: TEDUGLUTIDE
     Dosage: 0.22 MILLILITER, QD
  3. TEDUGLUTIDE [Suspect]
     Active Substance: TEDUGLUTIDE
     Dosage: 0.22 MILLILITER, QOD
     Dates: start: 20250831
  4. TEDUGLUTIDE [Suspect]
     Active Substance: TEDUGLUTIDE
     Dosage: 0.22 MILLILITER, QD
  5. VANCOMYCIN [Suspect]
     Active Substance: VANCOMYCIN
     Indication: Sepsis
  6. SKYRIZI [Concomitant]
     Active Substance: RISANKIZUMAB-RZAA
  7. HYDROXYZINE [Concomitant]
     Active Substance: HYDROXYZINE HYDROCHLORIDE
  8. TPN [Concomitant]
     Active Substance: AMINO ACIDS\DEXTROSE\ELECTROLYTES NOS\SOYBEAN OIL
  9. TEMAZEPAM [Concomitant]
     Active Substance: TEMAZEPAM
  10. SEROQUEL [Concomitant]
     Active Substance: QUETIAPINE FUMARATE
  11. LAMICTAL [Concomitant]
     Active Substance: LAMOTRIGINE
  12. ZOFRAN [Concomitant]
     Active Substance: ONDANSETRON HYDROCHLORIDE
  13. ROSUVASTATIN [Concomitant]
     Active Substance: ROSUVASTATIN
  14. ELIQUIS [Concomitant]
     Active Substance: APIXABAN
     Indication: Thrombosis
  15. TOPAMAX [Concomitant]
     Active Substance: TOPIRAMATE
  16. BUPROPION [Concomitant]
     Active Substance: BUPROPION
  17. Teltas [Concomitant]
  18. STRATTERA [Concomitant]
     Active Substance: ATOMOXETINE HYDROCHLORIDE
  19. LOPERAMIDE [Concomitant]
     Active Substance: LOPERAMIDE
  20. TIZANIDINE [Concomitant]
     Active Substance: TIZANIDINE
  21. KLONOPIN [Concomitant]
     Active Substance: CLONAZEPAM
  22. NURTEC ODT [Concomitant]
     Active Substance: RIMEGEPANT SULFATE
     Indication: Migraine
  23. RIZATRIPTAN [Concomitant]
     Active Substance: RIZATRIPTAN
     Indication: Migraine
  24. MELATONIN [Concomitant]
     Active Substance: MELATONIN
  25. VALERIAN [Concomitant]
     Active Substance: VALERIAN
  26. RABEPRAZOLE [Concomitant]
     Active Substance: RABEPRAZOLE

REACTIONS (17)
  - Vascular device infection [Unknown]
  - Catheter site thrombosis [Unknown]
  - Device related sepsis [Unknown]
  - Inflammatory bowel disease [Unknown]
  - Product distribution issue [Unknown]
  - Liquid product physical issue [Unknown]
  - Inappropriate schedule of product administration [Unknown]
  - Migraine [Unknown]
  - Gastrooesophageal reflux disease [Unknown]
  - Dyspepsia [Unknown]
  - Rash [Not Recovered/Not Resolved]
  - Injection site rash [Unknown]
  - Nausea [Not Recovered/Not Resolved]
  - Vomiting [Not Recovered/Not Resolved]
  - Injection site erythema [Unknown]
  - Abdominal pain [Not Recovered/Not Resolved]
  - Product storage error [Unknown]

NARRATIVE: CASE EVENT DATE: 20250625
